FAERS Safety Report 25265156 (Version 1)
Quarter: 2025Q2

REPORT INFORMATION
  Report Type: Report from Study
  Country: CO (occurrence: CO)
  Receive Date: 20250502
  Receipt Date: 20250502
  Transmission Date: 20250716
  Serious: Yes (Death, Hospitalization, Other)
  Sender: ALEXION PHARMACEUTICALS
  Company Number: CO-AstraZeneca-CH-00858500A

PATIENT
  Age: 14 Year
  Weight: 25 kg

DRUGS (1)
  1. STRENSIQ [Suspect]
     Active Substance: ASFOTASE ALFA
     Indication: Hypophosphatasia
     Dosage: 40 MILLIGRAM, TIW

REACTIONS (2)
  - Bradycardia [Fatal]
  - Abdominal mass [Unknown]
